FAERS Safety Report 10994645 (Version 1)
Quarter: 2015Q2

REPORT INFORMATION
  Report Type: Spontaneous
  Country: US (occurrence: None)
  Receive Date: 20150406
  Receipt Date: 20150406
  Transmission Date: 20150821
  Serious: Yes (Other)
  Sender: FDA-Public Use
  Company Number: None

PATIENT
  Age: 25 Year
  Sex: Female
  Weight: 84.37 kg

DRUGS (2)
  1. UNKNOWN [Suspect]
     Active Substance: UNSPECIFIED INGREDIENT
     Dates: start: 20141219
  2. WELLBUTRIN XL [Suspect]
     Active Substance: BUPROPION HYDROCHLORIDE
     Indication: MAJOR DEPRESSION
     Route: 048
     Dates: start: 20141022, end: 20141219

REACTIONS (1)
  - Tremor [None]

NARRATIVE: CASE EVENT DATE: 20141219
